FAERS Safety Report 4300599-X (Version None)
Quarter: 2004Q1

REPORT INFORMATION
  Report Type: 
  Country: None (occurrence: None)
  Receive Date: 20040220
  Receipt Date: 20040212
  Transmission Date: 20041129
  Serious: Yes (Other)
  Sender: FDA-Public Use
  Company Number: US-ROCHE-358826

PATIENT
  Age: 14 Year
  Sex: Female
  Weight: 63.5 kg

DRUGS (1)
  1. ACCUTANE [Suspect]
     Route: 048
     Dates: start: 20030915, end: 20031215

REACTIONS (6)
  - ACNE [None]
  - CHAPPED LIPS [None]
  - DEPRESSION [None]
  - IRRITABILITY [None]
  - KERATOCONJUNCTIVITIS SICCA [None]
  - SUICIDAL IDEATION [None]
